FAERS Safety Report 21256613 (Version 17)
Quarter: 2024Q3

REPORT INFORMATION
  Report Type: Spontaneous
  Country: PE (occurrence: PE)
  Receive Date: 20220826
  Receipt Date: 20240716
  Transmission Date: 20241017
  Serious: Yes (Other)
  Sender: AMGEN
  Company Number: PE-PFIZER INC-PV202200046833

PATIENT
  Age: 53 Year
  Sex: Female
  Weight: 42.5 kg

DRUGS (10)
  1. ENBREL [Suspect]
     Active Substance: BENZYL ALCOHOL\ETANERCEPT
     Indication: Rheumatoid arthritis
     Dosage: 25 MG, WEEKLY
     Route: 058
     Dates: start: 202002, end: 202308
  2. CALCIUM [Concomitant]
     Active Substance: CALCIUM
     Dosage: UNK, DAILY
     Route: 065
  3. CALCIUM CARBONATE\ERGOCALCIFEROL\RETINOL [Concomitant]
     Active Substance: CALCIUM CARBONATE\ERGOCALCIFEROL\RETINOL
     Dosage: UNK, DAILY
     Route: 065
  4. FOLIC ACID [Concomitant]
     Active Substance: FOLIC ACID
     Dosage: 2 DF, DAILY
     Route: 065
     Dates: start: 2022
  5. GABAPENTIN [Concomitant]
     Active Substance: GABAPENTIN
     Dosage: UNK
     Route: 065
  6. ORPHENADRINE CITRATE [Concomitant]
     Active Substance: ORPHENADRINE CITRATE
     Dosage: UNK
     Route: 065
  7. LEFLUNOMIDE [Concomitant]
     Active Substance: LEFLUNOMIDE
     Dosage: 1 DF, DAILY
     Route: 065
  8. PREDNISONE [Concomitant]
     Active Substance: PREDNISONE
     Dosage: UNK, DAILY
     Route: 065
  9. SULFASALAZINE [Concomitant]
     Active Substance: SULFASALAZINE
     Dosage: 2 DF, DAILY
     Route: 065
  10. RANITIDINE [Concomitant]
     Active Substance: RANITIDINE
     Dosage: UNK, DAILY
     Route: 065

REACTIONS (20)
  - Cervix carcinoma [Recovered/Resolved]
  - Pain [Recovering/Resolving]
  - Diabetes mellitus [Recovered/Resolved]
  - Rectal haemorrhage [Recovering/Resolving]
  - Thrombosis [Recovered/Resolved]
  - Spinal cord herniation [Recovering/Resolving]
  - Amenorrhoea [Not Recovered/Not Resolved]
  - Uterine disorder [Recovered/Resolved]
  - Gait disturbance [Recovering/Resolving]
  - Spinal column injury [Recovered/Resolved]
  - Endometrial thickening [Recovered/Resolved]
  - Nerve compression [Recovering/Resolving]
  - Neuritis [Recovering/Resolving]
  - Decreased immune responsiveness [Recovered/Resolved]
  - Hypoaesthesia [Recovering/Resolving]
  - Muscular weakness [Recovering/Resolving]
  - Prolapse [Recovered/Resolved]
  - Scoliosis [Recovering/Resolving]
  - Haemorrhoids [Unknown]
  - Off label use [Unknown]

NARRATIVE: CASE EVENT DATE: 20200201
